FAERS Safety Report 13739619 (Version 1)
Quarter: 2017Q3

REPORT INFORMATION
  Report Type: Spontaneous
  Country: JP (occurrence: JP)
  Receive Date: 20170711
  Receipt Date: 20170711
  Transmission Date: 20171127
  Serious: Yes (Other)
  Sender: FDA-Public Use
  Company Number: PHHY2009JP42064

PATIENT
  Age: 59 Year
  Sex: Female

DRUGS (1)
  1. MIKELAN LA 2% (NVO) [Suspect]
     Active Substance: CARTEOLOL HYDROCHLORIDE
     Dosage: 1 GTT, QD
     Route: 047
     Dates: start: 200810

REACTIONS (2)
  - Dysphonia [Unknown]
  - Laryngeal pain [Unknown]

NARRATIVE: CASE EVENT DATE: 20090914
